FAERS Safety Report 4888237-9 (Version None)
Quarter: 2006Q1

REPORT INFORMATION
  Report Type: 
  Country: None (occurrence: None)
  Receive Date: 20060123
  Receipt Date: 20060119
  Transmission Date: 20060701
  Serious: Yes (Life-Threatening)
  Sender: FDA-Public Use
  Company Number: PHBS2006JP01157

PATIENT
  Age: 88 Year
  Sex: Female

DRUGS (3)
  1. OLMETEC [Concomitant]
     Dosage: 20 MG, UNK
     Route: 048
  2. DIOVAN [Suspect]
     Indication: HYPERTENSION
     Dosage: 80 MG/DAY
     Route: 048
  3. DIOVAN [Suspect]
     Dosage: 160 MG/DAY
     Route: 048
     Dates: start: 20060106, end: 20060109

REACTIONS (4)
  - ASTHENIA [None]
  - DRUG LEVEL INCREASED [None]
  - HYPOAESTHESIA [None]
  - PAIN [None]
